FAERS Safety Report 11196184 (Version 1)
Quarter: 2015Q2

REPORT INFORMATION
  Report Type: Spontaneous
  Country: US (occurrence: None)
  Receive Date: 20150616
  Receipt Date: 20150616
  Transmission Date: 20150821
  Serious: Yes (Hospitalization)
  Sender: FDA-Public Use
  Company Number: None

PATIENT
  Age: 22 Month
  Sex: Female
  Weight: 10.1 kg

DRUGS (9)
  1. SIROLIUMUS 0.1MG [Concomitant]
  2. FERROUS SULFATE 15MG [Concomitant]
  3. CHOLECALCIFEROL 400 UNITS [Concomitant]
  4. ELEMENTAL IRON [Concomitant]
  5. PENTAMIDINE [Suspect]
     Active Substance: PENTAMIDINE
     Indication: ANTIFUNGAL PROPHYLAXIS
     Route: 042
     Dates: start: 20150422, end: 20150422
  6. FLUCONAZOLE SUSP 24MG [Concomitant]
  7. OMEPRAZOLE SUSP 10MG [Concomitant]
  8. PENTAMIDINE [Suspect]
     Active Substance: PENTAMIDINE
     Indication: COMBINED IMMUNODEFICIENCY
     Route: 042
     Dates: start: 20150422, end: 20150422
  9. FOLIC ACID 0.5MG [Concomitant]

REACTIONS (5)
  - Depressed level of consciousness [None]
  - Pallor [None]
  - Hyporesponsive to stimuli [None]
  - Screaming [None]
  - Crying [None]

NARRATIVE: CASE EVENT DATE: 20150422
